FAERS Safety Report 4874943-9 (Version None)
Quarter: 2006Q1

REPORT INFORMATION
  Report Type: 
  Country: None (occurrence: None)
  Receive Date: 20060105
  Receipt Date: 20051227
  Transmission Date: 20060701
  Serious: Yes (Death, Other)
  Sender: FDA-Public Use
  Company Number: 200514962BCC

PATIENT
  Age: 87 Year
  Sex: Female

DRUGS (2)
  1. ALEVE [Suspect]
     Indication: ARTHRALGIA
     Dosage: ORAL
     Route: 048
     Dates: start: 19880101, end: 20020101
  2. ALEVE [Suspect]
     Indication: PAIN
     Dosage: ORAL
     Route: 048
     Dates: start: 19880101, end: 20020101

REACTIONS (1)
  - HEPATIC NEOPLASM MALIGNANT [None]
